FAERS Safety Report 11294578 (Version 1)
Quarter: 2015Q3

REPORT INFORMATION
  Report Type: Spontaneous
  Country: None (occurrence: None)
  Receive Date: 20150721
  Receipt Date: 20150721
  Transmission Date: 20151125
  Serious: Yes (Other)
  Sender: FDA-Public Use
  Company Number: CO-PL-CA-2015-034

PATIENT
  Sex: Female

DRUGS (5)
  1. XELJANZ (UNKNOWN) (TOFACITINIB CITRATE) [Concomitant]
  2. CELEBREX (UNKNOWN) (CELECOXIB) [Concomitant]
  3. METHOTREXATE (UNKNOWN) (METHOTREXATE) [Concomitant]
  4. PLAQUENIL [Suspect]
     Active Substance: HYDROXYCHLOROQUINE SULFATE
     Indication: RHEUMATOID ARTHRITIS
  5. SIMPONI (UNKNOWN) (GOLIMUMAB) [Concomitant]

REACTIONS (6)
  - Sciatica [None]
  - Peripheral swelling [None]
  - Rheumatoid arthritis [None]
  - Bone erosion [None]
  - Tendonitis [None]
  - Plantar fasciitis [None]
